FAERS Safety Report 4600015-4 (Version None)
Quarter: 2005Q1

REPORT INFORMATION
  Report Type: 
  Country: None (occurrence: None)
  Receive Date: 20050303
  Receipt Date: 20051002
  Transmission Date: 20050727
  Serious: Yes (Death)
  Sender: FDA-Public Use
  Company Number: DEPFP-S-20050005- V001

PATIENT
  Age: 33 Year
  Sex: Female

DRUGS (8)
  1. BUSULFEX [Suspect]
     Indication: BONE MARROW CONDITIONING REGIMEN
     Dosage: INTRAVENOUS
     Route: 042
     Dates: start: 20040928, end: 20041002
  2. ENDOXAN [Concomitant]
  3. ATGAM [Concomitant]
  4. RANITIDINE [Concomitant]
  5. TAVEGIL [Concomitant]
  6. SYNAREL [Concomitant]
  7. SOLU DECORTIN H [Concomitant]
  8. PREDNISOLONE [Concomitant]

REACTIONS (6)
  - ASCITES [None]
  - HEPATIC FAILURE [None]
  - HEPATOMEGALY [None]
  - HYPERBILIRUBINAEMIA [None]
  - VENOOCCLUSIVE DISEASE [None]
  - WEIGHT INCREASED [None]
